FAERS Safety Report 22233173 (Version 1)
Quarter: 2023Q2

REPORT INFORMATION
  Report Type: Spontaneous
  Country: US (occurrence: None)
  Receive Date: 20230420
  Receipt Date: 20230420
  Transmission Date: 20230722
  Serious: No
  Sender: FDA-Public Use
  Company Number: US-ROCHE-3050705

PATIENT
  Sex: Female

DRUGS (12)
  1. ESBRIET [Suspect]
     Active Substance: PIRFENIDONE
     Indication: Amyloidosis
     Dosage: TAKE 3 CAPSULE (801 MG) BY MOUTH 3 TIMES DAILY WITH MEALS
     Route: 048
  2. AMLODIPINE [Concomitant]
     Active Substance: AMLODIPINE BESYLATE
  3. CARVEDILOL [Concomitant]
     Active Substance: CARVEDILOL
  4. ELIQUIS [Concomitant]
     Active Substance: APIXABAN
  5. FUROSEMIDE [Concomitant]
     Active Substance: FUROSEMIDE
  6. JANUVIA [Concomitant]
     Active Substance: SITAGLIPTIN PHOSPHATE
  7. KLOR CON M [Concomitant]
     Active Substance: POTASSIUM CHLORIDE
  8. LANTUS SOLOSTAR [Concomitant]
     Active Substance: INSULIN GLARGINE
  9. LIDOCAINE [Concomitant]
     Active Substance: LIDOCAINE
  10. NOVOLOG [Concomitant]
     Active Substance: INSULIN ASPART
  11. VALSARTAN [Concomitant]
     Active Substance: VALSARTAN
  12. VYNDAMAX [Concomitant]
     Active Substance: TAFAMIDIS

REACTIONS (3)
  - Cough [Unknown]
  - Ill-defined disorder [Unknown]
  - Wheezing [Unknown]
